FAERS Safety Report 12311765 (Version 1)
Quarter: 2016Q2

REPORT INFORMATION
  Report Type: Spontaneous
  Country: DE (occurrence: DE)
  Receive Date: 20160427
  Receipt Date: 20160427
  Transmission Date: 20160815
  Serious: Yes (Death, Hospitalization, Other)
  Sender: FDA-Public Use
  Company Number: DE-ROXANE LABORATORIES, INC.-2016-RO-00750RO

PATIENT
  Age: 71 Year
  Sex: Male

DRUGS (5)
  1. PREDNISONE TABLETS USP, 5MG [Suspect]
     Active Substance: PREDNISONE
     Indication: GLOMERULONEPHRITIS MEMBRANOUS
     Dosage: 10 MG
     Route: 065
  2. LINEZOLID. [Suspect]
     Active Substance: LINEZOLID
     Indication: NOCARDIOSIS
     Dosage: 1200 MG
     Route: 048
  3. MYCOPHENOLATE MOFETIL (CAPSULES) USP [Suspect]
     Active Substance: MYCOPHENOLATE MOFETIL
     Indication: GLOMERULONEPHRITIS MEMBRANOUS
     Dosage: 1000 MG
     Route: 065
  4. MYCOPHENOLATE MOFETIL (CAPSULES) USP [Suspect]
     Active Substance: MYCOPHENOLATE MOFETIL
     Dosage: 500 MG
     Route: 065
  5. PREDNISONE TABLETS USP, 5MG [Suspect]
     Active Substance: PREDNISONE
     Dosage: 5 MG
     Route: 065

REACTIONS (7)
  - Cardiac death [Fatal]
  - Nocardiosis [Unknown]
  - Muscle abscess [Unknown]
  - Anaemia [Unknown]
  - Lung infiltration [Unknown]
  - Thrombocytopenia [Unknown]
  - Hepatocellular carcinoma [Unknown]
